FAERS Safety Report 6208000-6 (Version None)
Quarter: 2009Q2

REPORT INFORMATION
  Report Type: 
  Country: None (occurrence: None)
  Receive Date: 20090529
  Receipt Date: 20090312
  Transmission Date: 20091009
  Serious: No
  Sender: FDA-Public Use
  Company Number: A0773057A

PATIENT
  Age: 51 Year
  Sex: Female

DRUGS (3)
  1. VENTOLIN [Suspect]
     Indication: ASTHMA
     Dosage: 2PUFF AS REQUIRED
     Route: 055
     Dates: start: 20081101, end: 20090201
  2. FLOVENT [Concomitant]
     Route: 055
  3. ATROVENT [Concomitant]

REACTIONS (1)
  - DRUG INEFFECTIVE [None]
